FAERS Safety Report 5951756-8 (Version None)
Quarter: 2008Q4

REPORT INFORMATION
  Report Type: 
  Country: None (occurrence: None)
  Receive Date: 20081113
  Receipt Date: 20081031
  Transmission Date: 20090506
  Serious: Yes (Other)
  Sender: FDA-Public Use
  Company Number: JP-ROCHE-579847

PATIENT
  Sex: Male

DRUGS (4)
  1. DIAZEPAM [Suspect]
     Indication: DRUG USE FOR UNKNOWN INDICATION
     Route: 065
     Dates: start: 20070525, end: 20070525
  2. DIAZEPAM [Suspect]
     Dosage: FORM INJECTABLE
     Route: 065
     Dates: start: 20080707, end: 20080707
  3. BUSCOPAN [Concomitant]
  4. GLUCAGON [Concomitant]

REACTIONS (2)
  - DIARRHOEA [None]
  - VOMITING [None]
